FAERS Safety Report 5530745-1 (Version None)
Quarter: 2007Q4

REPORT INFORMATION
  Report Type: 
  Country: None (occurrence: None)
  Receive Date: 20071128
  Receipt Date: 20071128
  Transmission Date: 20080405
  Serious: Yes (Hospitalization)
  Sender: FDA-Public Use
  Company Number: None

PATIENT
  Sex: Female
  Weight: 102.7 kg

DRUGS (4)
  1. CISPLATIN [Suspect]
     Dosage: 100 MG
  2. DOXORUBICIN HYDROCHLORIDE [Suspect]
     Dosage: 90 MG
  3. G-CSF (FILGRASTIM,AMGEN) [Suspect]
     Dosage: 6 MG
  4. TAXOL [Suspect]
     Dosage: 320 MG

REACTIONS (4)
  - ABDOMINAL PAIN [None]
  - ASCITES [None]
  - HYPOTENSION [None]
  - NEUTROPENIA [None]
